FAERS Safety Report 11723946 (Version 1)
Quarter: 2015Q4

REPORT INFORMATION
  Report Type: Spontaneous
  Country: US (occurrence: None)
  Receive Date: 20151111
  Receipt Date: 20151111
  Transmission Date: 20160304
  Serious: No
  Sender: FDA-Public Use
  Company Number: US-MDT-ADR-2015-02124

PATIENT
  Age: 45 Year
  Sex: Male

DRUGS (1)
  1. BACLOFEN INTRATHECAL  - 2000 MCG/ML [Suspect]
     Active Substance: BACLOFEN
     Indication: MUSCLE SPASTICITY
     Dosage: 920.3 MCG/DAY

REACTIONS (1)
  - Therapeutic response decreased [None]
